FAERS Safety Report 8037491-3 (Version None)
Quarter: 2012Q1

REPORT INFORMATION
  Report Type: 
  Country: None (occurrence: None)
  Receive Date: 20120111
  Receipt Date: 20120102
  Transmission Date: 20120608
  Serious: No
  Sender: FDA-Public Use
  Company Number: US-PFIZER INC-2012000476

PATIENT
  Sex: Female
  Weight: 53.515 kg

DRUGS (4)
  1. CHANTIX [Suspect]
     Indication: SMOKING CESSATION THERAPY
     Dosage: 0.5 MG, 1X/DAY
     Route: 048
     Dates: start: 20110801, end: 20110801
  2. NAPROXEN [Concomitant]
     Dosage: UNK
  3. VESICARE [Concomitant]
     Indication: BLADDER DISORDER
     Dosage: UNK
  4. CHANTIX [Suspect]
     Dosage: 1 MG, 2X/DAY
     Route: 048
     Dates: start: 20110801, end: 20110801

REACTIONS (2)
  - VOMITING [None]
  - NAUSEA [None]
